FAERS Safety Report 22347175 (Version 2)
Quarter: 2024Q2

REPORT INFORMATION
  Report Type: Spontaneous
  Country: US (occurrence: US)
  Receive Date: 20230520
  Receipt Date: 20240504
  Transmission Date: 20240716
  Serious: Yes (Other)
  Sender: FDA-Public Use
  Company Number: US-LUOXINA-LUX-2023-US-LIT-00031

PATIENT
  Age: 73 Year
  Sex: Male

DRUGS (3)
  1. TOBRAMYCIN [Suspect]
     Active Substance: TOBRAMYCIN\TOBRAMYCIN SULFATE
     Indication: Pseudomonas infection
     Dosage: WAS MAINTAINED ON A TWO WEEK ON AND TWO WEEK OFF SCHEDULE
  2. TOBRAMYCIN [Suspect]
     Active Substance: TOBRAMYCIN\TOBRAMYCIN SULFATE
  3. TACROLIMUS [Concomitant]
     Active Substance: TACROLIMUS
     Indication: Pseudomonas infection

REACTIONS (1)
  - Acute kidney injury [Recovering/Resolving]
